FAERS Safety Report 13001178 (Version 3)
Quarter: 2016Q4

REPORT INFORMATION
  Report Type: Spontaneous
  Country: US (occurrence: US)
  Receive Date: 20161206
  Receipt Date: 20161209
  Transmission Date: 20170207
  Serious: Yes (Other)
  Sender: FDA-Public Use
  Company Number: US-ASTRAZENECA-2016SF24924

PATIENT
  Age: 914 Month
  Sex: Male

DRUGS (9)
  1. LISINOPRIL. [Suspect]
     Active Substance: LISINOPRIL
     Route: 048
  2. SUTENT [Suspect]
     Active Substance: SUNITINIB MALATE
     Indication: METASTATIC RENAL CELL CARCINOMA
     Dosage: 50 MG, 28 DAYS ON/14 DAYS OFF
     Route: 065
     Dates: start: 20161021
  3. AMLODIPINE [Concomitant]
     Active Substance: AMLODIPINE BESYLATE
  4. PRILOSEC OTC [Suspect]
     Active Substance: OMEPRAZOLE MAGNESIUM
     Route: 048
  5. OMEPRAZOLE. [Suspect]
     Active Substance: OMEPRAZOLE
     Route: 048
  6. FISH OIL [Concomitant]
     Active Substance: FISH OIL
  7. VITAMIN C [Concomitant]
     Active Substance: ASCORBIC ACID
  8. FOLIC ACID. [Concomitant]
     Active Substance: FOLIC ACID
  9. NIACIN. [Concomitant]
     Active Substance: NIACIN

REACTIONS (12)
  - Renal cancer [Unknown]
  - Dry skin [Unknown]
  - Haematemesis [Unknown]
  - Drug ineffective [Unknown]
  - Ageusia [Unknown]
  - Oral pain [Unknown]
  - Tongue haemorrhage [Unknown]
  - Decreased appetite [Unknown]
  - Dyspepsia [Unknown]
  - Lip dry [Unknown]
  - Nail discolouration [Unknown]
  - Contusion [Unknown]

NARRATIVE: CASE EVENT DATE: 201607
